FAERS Safety Report 24342666 (Version 2)
Quarter: 2024Q4

REPORT INFORMATION
  Report Type: Other
  Country: JP (occurrence: JP)
  Receive Date: 20240920
  Receipt Date: 20241004
  Transmission Date: 20250115
  Serious: Yes (Hospitalization)
  Sender: ALVOGEN
  Company Number: JP-ALVOGEN-2024095492

PATIENT
  Age: 84 Year
  Sex: Female
  Weight: 28.9 kg

DRUGS (2)
  1. FLECAINIDE [Suspect]
     Active Substance: FLECAINIDE
     Indication: Atrial fibrillation
     Dosage: 200MG/DAY
  2. FLECAINIDE [Suspect]
     Active Substance: FLECAINIDE
     Indication: Atrial fibrillation
     Dosage: 100MG/DAY

REACTIONS (13)
  - Toxicity to various agents [Recovering/Resolving]
  - Accelerated idioventricular rhythm [Recovered/Resolved]
  - Dyspnoea exertional [Unknown]
  - Jugular vein distension [Unknown]
  - Mitral valve incompetence [Unknown]
  - Tricuspid valve incompetence [Unknown]
  - Cardiomegaly [Unknown]
  - Cardiothoracic ratio increased [Unknown]
  - Defect conduction intraventricular [Unknown]
  - Cardiac failure [Unknown]
  - Bundle branch block right [Unknown]
  - Ventricular tachycardia [Unknown]
  - Decreased appetite [Unknown]
